FAERS Safety Report 25079869 (Version 2)
Quarter: 2025Q2

REPORT INFORMATION
  Report Type: Spontaneous
  Country: US (occurrence: US)
  Receive Date: 20250314
  Receipt Date: 20250411
  Transmission Date: 20250716
  Serious: No
  Sender: AMGEN
  Company Number: US-PFIZER INC-202500052952

PATIENT
  Age: 65 Year
  Sex: Male

DRUGS (1)
  1. ENBREL [Suspect]
     Active Substance: ETANERCEPT
     Indication: Product used for unknown indication
     Route: 065

REACTIONS (3)
  - Swollen tongue [Unknown]
  - Drug hypersensitivity [Unknown]
  - Urticaria [Unknown]
